APPROVED DRUG PRODUCT: ALLOPURINOL
Active Ingredient: ALLOPURINOL
Strength: 100MG
Dosage Form/Route: TABLET;ORAL
Application: A070579 | Product #001
Applicant: PUREPAC PHARMACEUTICAL CO
Approved: Apr 14, 1986 | RLD: No | RS: No | Type: DISCN